FAERS Safety Report 4310801-6 (Version None)
Quarter: 2004Q1

REPORT INFORMATION
  Report Type: 
  Country: None (occurrence: None)
  Receive Date: 20040301
  Receipt Date: 20031204
  Transmission Date: 20041129
  Serious: No
  Sender: FDA-Public Use
  Company Number: WAES 0312USA00620

PATIENT
  Age: 73 Year
  Sex: Female

DRUGS (2)
  1. ZETIA [Suspect]
     Indication: HYPERCHOLESTEROLAEMIA
     Dosage: 10MG/DAILY/PO
     Dates: start: 20030120, end: 20030101
  2. WELCHOL [Concomitant]

REACTIONS (1)
  - LIVER FUNCTION TEST ABNORMAL [None]
